FAERS Safety Report 25797218 (Version 1)
Quarter: 2025Q3

REPORT INFORMATION
  Report Type: Spontaneous
  Country: US (occurrence: US)
  Receive Date: 20250912
  Receipt Date: 20250912
  Transmission Date: 20251020
  Serious: Yes (Death, Life-Threatening, Hospitalization, Other)
  Sender: VELOXIS PHARMACEUTICALS
  Company Number: US-MLMSERVICE-20250901-PI629505-00232-1

PATIENT
  Age: 57 Year
  Sex: Male

DRUGS (2)
  1. TACROLIMUS [Suspect]
     Active Substance: TACROLIMUS
     Indication: Immunosuppressant drug therapy
     Route: 065
  2. MYCOPHENOLATE MOFETIL [Suspect]
     Active Substance: MYCOPHENOLATE MOFETIL
     Indication: Immunosuppressant drug therapy
     Route: 065

REACTIONS (9)
  - Respiratory failure [Fatal]
  - Immune reconstitution inflammatory syndrome [Fatal]
  - Endocarditis bacterial [Fatal]
  - Bacteraemia [Fatal]
  - Pneumonia necrotising [Fatal]
  - Rhodococcus infection [Fatal]
  - Pseudomonas infection [Unknown]
  - Staphylococcal infection [Unknown]
  - Bacterial infection [Unknown]
